FAERS Safety Report 20016800 (Version 1)
Quarter: 2021Q4

REPORT INFORMATION
  Report Type: Spontaneous
  Country: US (occurrence: None)
  Receive Date: 20211105
  Receipt Date: 20211105
  Transmission Date: 20220303
  Serious: Yes (Hospitalization)
  Sender: FDA-Public Use
  Company Number: None

PATIENT
  Sex: Female

DRUGS (2)
  1. TAFINLAR [Suspect]
     Active Substance: DABRAFENIB MESYLATE
     Dosage: OTHER FREQUENCY : 2 CAPS EVERY 12 HO;?
     Route: 048
     Dates: start: 20201223
  2. MEKINIST [Suspect]
     Active Substance: TRAMETINIB DIMETHYL SULFOXIDE
     Dosage: FREQUENCY : DAILY;?
     Route: 048
     Dates: start: 20201223

REACTIONS (3)
  - Myocardial infarction [None]
  - Dyspnoea [None]
  - Depressed level of consciousness [None]
